FAERS Safety Report 4704274-9 (Version None)
Quarter: 2005Q2

REPORT INFORMATION
  Report Type: 
  Country: None (occurrence: None)
  Receive Date: 20050630
  Receipt Date: 20050624
  Transmission Date: 20051028
  Serious: Yes (Hospitalization)
  Sender: FDA-Public Use
  Company Number: 2005AP03482

PATIENT
  Age: 82 Year
  Sex: Female

DRUGS (2)
  1. ATENOLOL [Suspect]
     Indication: ATRIAL FIBRILLATION
     Route: 048
  2. ATENOLOL [Suspect]
     Indication: HYPERTENSION
     Route: 048

REACTIONS (11)
  - ANOREXIA [None]
  - BLOOD BICARBONATE DECREASED [None]
  - BLOOD CREATININE INCREASED [None]
  - BLOOD POTASSIUM INCREASED [None]
  - BLOOD PRESSURE DECREASED [None]
  - BRADYCARDIA [None]
  - CARDIAC FAILURE [None]
  - DRUG LEVEL INCREASED [None]
  - DRUG TOXICITY [None]
  - HAEMODIALYSIS [None]
  - NAUSEA [None]
